FAERS Safety Report 10694916 (Version 2)
Quarter: 2015Q1

REPORT INFORMATION
  Report Type: Spontaneous
  Country: US (occurrence: None)
  Receive Date: 20150105
  Receipt Date: 20150116
  Transmission Date: 20150721
  Serious: Yes (Hospitalization)
  Sender: FDA-Public Use
  Company Number: USW201412-000287

PATIENT
  Age: 78 Year
  Sex: Female

DRUGS (1)
  1. APOKYN [Suspect]
     Active Substance: APOMORPHINE HYDROCHLORIDE
     Indication: PARKINSON^S DISEASE
     Route: 058
     Dates: start: 20141104

REACTIONS (5)
  - Gait disturbance [None]
  - Blood pressure decreased [None]
  - Urinary tract infection [None]
  - Feeling abnormal [None]
  - Pneumonia [None]

NARRATIVE: CASE EVENT DATE: 20141130
